FAERS Safety Report 6407860-3 (Version None)
Quarter: 2009Q4

REPORT INFORMATION
  Report Type: 
  Country: None (occurrence: None)
  Receive Date: 20091015
  Receipt Date: 20091006
  Transmission Date: 20100525
  Serious: Yes (Disabling, Other)
  Sender: FDA-Public Use
  Company Number: SPV1-2009-01863

PATIENT
  Age: 13 Year
  Sex: Male
  Weight: 44.1 kg

DRUGS (1)
  1. DAYTRANA [Suspect]
     Indication: ATTENTION DEFICIT/HYPERACTIVITY DISORDER
     Dosage: 10 MG, ONE DOSE, TRANSDERMAL
     Route: 062
     Dates: start: 20090915, end: 20090915

REACTIONS (16)
  - BLOOD PRESSURE INCREASED [None]
  - DISORIENTATION [None]
  - DIZZINESS [None]
  - DYSARTHRIA [None]
  - EYE ROLLING [None]
  - HYPERSENSITIVITY [None]
  - MUSCLE RIGIDITY [None]
  - NERVOUSNESS [None]
  - OFF LABEL USE [None]
  - OVERDOSE [None]
  - PALLOR [None]
  - PRODUCT QUALITY ISSUE [None]
  - PUPIL FIXED [None]
  - PUPILLARY DISORDER [None]
  - TIC [None]
  - UNRESPONSIVE TO STIMULI [None]
